FAERS Safety Report 7629894-3 (Version None)
Quarter: 2011Q3

REPORT INFORMATION
  Report Type: 
  Country: None (occurrence: None)
  Receive Date: 20110722
  Receipt Date: 20110712
  Transmission Date: 20111222
  Serious: No
  Sender: FDA-Public Use
  Company Number: US-PFIZER INC-2011027564

PATIENT
  Sex: Male
  Weight: 84.354 kg

DRUGS (12)
  1. SYNTHROID [Concomitant]
     Indication: THYROID DISORDER
     Dosage: UNK
  2. CLONIDINE [Concomitant]
     Indication: HYPERTENSION
     Dosage: 2 MG, UNK
  3. CALCITRIOL [Concomitant]
     Dosage: UNK
  4. CLONIDINE [Concomitant]
     Dosage: 1 MG, UNK
  5. SIMVASTATIN [Concomitant]
     Indication: BLOOD CHOLESTEROL INCREASED
     Dosage: UNK
  6. LANTUS [Concomitant]
     Indication: DIABETES MELLITUS
     Dosage: DAILY
  7. AMLODIPINE [Concomitant]
     Indication: BLOOD PRESSURE
     Dosage: 10 MG, AS NEEDED
  8. SUTENT [Suspect]
     Indication: HEPATIC CANCER METASTATIC
     Dosage: 50 MG, DAILY
     Route: 048
     Dates: start: 20110110
  9. ATENOLOL [Concomitant]
     Indication: HYPERTENSION
     Dosage: UNK
  10. ALLOPURINOL [Concomitant]
     Indication: PAIN IN EXTREMITY
     Dosage: DAILY
  11. INSULIN GLULISINE [Concomitant]
     Indication: DIABETES MELLITUS
     Dosage: DAILY
  12. AMLODIPINE [Concomitant]
     Indication: BLOOD PRESSURE SYSTOLIC INCREASED

REACTIONS (1)
  - NO ADVERSE EVENT [None]
